FAERS Safety Report 6661878-4 (Version None)
Quarter: 2010Q1

REPORT INFORMATION
  Report Type: 
  Country: None (occurrence: None)
  Receive Date: 20100331
  Receipt Date: 20090902
  Transmission Date: 20100710
  Serious: Yes (Hospitalization)
  Sender: FDA-Public Use
  Company Number: US-BRISTOL-MYERS SQUIBB COMPANY-14766091

PATIENT
  Age: 8 Decade
  Sex: Female

DRUGS (2)
  1. ERBITUX [Suspect]
  2. RADIATION THERAPY [Suspect]

REACTIONS (3)
  - DEHYDRATION [None]
  - HERPES VIRUS INFECTION [None]
  - MUCOSAL INFLAMMATION [None]
